FAERS Safety Report 20950421 (Version 1)
Quarter: 2022Q2

REPORT INFORMATION
  Report Type: Spontaneous
  Country: US (occurrence: None)
  Receive Date: 20220612
  Receipt Date: 20220612
  Transmission Date: 20220721
  Serious: No
  Sender: FDA-Public Use
  Company Number: None

PATIENT
  Age: 29 Year
  Sex: Female
  Weight: 114.3 kg

DRUGS (4)
  1. PAXLOVID [Suspect]
     Active Substance: NIRMATRELVIR\RITONAVIR
     Indication: COVID-19
     Dosage: OTHER QUANTITY : 3 TABLET(S);?FREQUENCY : EVERY 12 HOURS;?
     Route: 048
     Dates: start: 20220611, end: 20220612
  2. NP THYROID [Concomitant]
  3. EFFEXOR [Concomitant]
     Active Substance: VENLAFAXINE HYDROCHLORIDE
  4. PRENATAL VITAMIN [Concomitant]

REACTIONS (7)
  - Diarrhoea [None]
  - Tremor [None]
  - Pain [None]
  - Taste disorder [None]
  - Hypophagia [None]
  - Dysgeusia [None]
  - Dehydration [None]

NARRATIVE: CASE EVENT DATE: 20220611
